FAERS Safety Report 7809023-3 (Version None)
Quarter: 2011Q4

REPORT INFORMATION
  Report Type: 
  Country: None (occurrence: None)
  Receive Date: 20111012
  Receipt Date: 20111012
  Transmission Date: 20120403
  Serious: Yes (Hospitalization, Other)
  Sender: FDA-Public Use
  Company Number: None

PATIENT
  Age: 50 Year
  Sex: Male
  Weight: 74.842 kg

DRUGS (1)
  1. TRAMADOL HCL [Suspect]
     Indication: PAIN
     Dosage: 50MG
     Route: 048
     Dates: start: 20100801, end: 20110921

REACTIONS (13)
  - ABDOMINAL PAIN [None]
  - CONDITION AGGRAVATED [None]
  - NAUSEA [None]
  - APHAGIA [None]
  - CONVULSION [None]
  - WEIGHT DECREASED [None]
  - PAIN [None]
  - INSOMNIA [None]
  - MALAISE [None]
  - RASH PAPULAR [None]
  - DECREASED APPETITE [None]
  - DIARRHOEA [None]
  - DRUG WITHDRAWAL SYNDROME [None]
